FAERS Safety Report 6783183-8 (Version None)
Quarter: 2010Q2

REPORT INFORMATION
  Report Type: 
  Country: None (occurrence: None)
  Receive Date: 20100622
  Receipt Date: 20100616
  Transmission Date: 20101027
  Serious: Yes (Death)
  Sender: FDA-Public Use
  Company Number: SE-PFIZER INC-2010075151

PATIENT
  Age: 37 Year
  Sex: Male
  Weight: 94.4 kg

DRUGS (3)
  1. SOMATROPIN [Suspect]
     Indication: HYPOPITUITARISM
     Dosage: 0.4 MG, 7 INJECTIONS/WEEKLY
     Dates: start: 20090428
  2. AMLODIPINE [Concomitant]
     Dosage: 10 MG, 1X/DAY
     Route: 048
     Dates: start: 20100514
  3. LEVOTHYROXINE [Concomitant]
     Indication: HYPOTHYROIDISM
     Dosage: UNK MG/24H, UNK
     Dates: start: 20080813

REACTIONS (1)
  - DEATH [None]
